FAERS Safety Report 16948695 (Version 1)
Quarter: 2019Q4

REPORT INFORMATION
  Report Type: Spontaneous
  Country: US (occurrence: US)
  Receive Date: 20191023
  Receipt Date: 20191023
  Transmission Date: 20200122
  Serious: No
  Sender: FDA-Public Use
  Company Number: US-PURDUE-USA-2019-0148208

PATIENT
  Sex: Male

DRUGS (1)
  1. OXYCONTIN [Suspect]
     Active Substance: OXYCODONE HYDROCHLORIDE
     Indication: PAIN
     Dosage: 20 MG, UNK
     Route: 048

REACTIONS (7)
  - Headache [Unknown]
  - Eye discharge [Unknown]
  - Drug ineffective [Unknown]
  - Breast mass [Unknown]
  - Product quality issue [Unknown]
  - Suspected counterfeit product [Unknown]
  - Rash [Unknown]

NARRATIVE: CASE EVENT DATE: 20190705
